FAERS Safety Report 9627093 (Version 1)
Quarter: 2013Q4

REPORT INFORMATION
  Report Type: Spontaneous
  Country: US (occurrence: None)
  Receive Date: 20131011
  Receipt Date: 20131011
  Transmission Date: 20140711
  Serious: Yes (Hospitalization)
  Sender: FDA-Public Use
  Company Number: 2013P1019880

PATIENT
  Age: 44 Year
  Sex: Female

DRUGS (5)
  1. LITHIUM [Suspect]
     Indication: BIPOLAR DISORDER
  2. OXCARBAZEPINE [Suspect]
     Indication: DEPRESSION
  3. ARIPIPRAZOLE [Suspect]
     Indication: BIPOLAR DISORDER
  4. LEVOTHYROXINE [Concomitant]
  5. ALPRAZOLAM [Concomitant]

REACTIONS (8)
  - Drug resistance [None]
  - Psychotic behaviour [None]
  - Hallucinations, mixed [None]
  - Stereotypy [None]
  - Staring [None]
  - Excessive eye blinking [None]
  - Slow response to stimuli [None]
  - Petit mal epilepsy [None]
